FAERS Safety Report 7484776-5 (Version None)
Quarter: 2011Q2

REPORT INFORMATION
  Report Type: 
  Country: None (occurrence: None)
  Receive Date: 20110505
  Receipt Date: 20110425
  Transmission Date: 20111010
  Serious: Yes (Disabling)
  Sender: FDA-Public Use
  Company Number: 2011027810

PATIENT
  Age: 50 Year
  Sex: Female
  Weight: 68.0396 kg

DRUGS (23)
  1. HIZENTRA [Suspect]
  2. ZONEGRAN [Concomitant]
  3. DIFLUCAN [Concomitant]
  4. HIZENTRA [Suspect]
  5. KEPPRA [Concomitant]
  6. HIZENTRA [Suspect]
  7. SOLU-MEDROL (METHYLPREDNISOLONE SODIIUM SUCCINATE) [Concomitant]
  8. CYMBALTA [Concomitant]
  9. TOPROL (IMETOPROLOL SUCCINATE) [Concomitant]
  10. HEPARIN [Concomitant]
  11. METRONIDAZOLE [Concomitant]
  12. ONDANSETRON [Concomitant]
  13. HIZENTRA [Suspect]
  14. SOLU-CORTEF [Concomitant]
  15. HIZENTRA [Suspect]
     Indication: IMMUNODEFICIENCY COMMON VARIABLE
     Dosage: 10 G 1X/WEEK, 50 ML INFUSED IN MULTIPLE SITES OVER 3-4 HOURS, SUBCUTANEOUS
     Route: 058
     Dates: start: 20110323
  16. HIZENTRA [Suspect]
     Indication: HYPOGAMMAGLOBULINAEMIA
     Dosage: 10 G 1X/WEEK, 50 ML INFUSED IN MULTIPLE SITES OVER 3-4 HOURS, SUBCUTANEOUS
     Route: 058
     Dates: start: 20110323
  17. HIZENTRA [Suspect]
     Indication: IMMUNODEFICIENCY COMMON VARIABLE
     Dosage: 10 G 1X/WEEK, 50 ML INFUSED IN MULTIPLE SITES OVER 3-4 HOURS, SUBCUTANEOUS
     Route: 058
     Dates: start: 20110331
  18. HIZENTRA [Suspect]
     Indication: HYPOGAMMAGLOBULINAEMIA
     Dosage: 10 G 1X/WEEK, 50 ML INFUSED IN MULTIPLE SITES OVER 3-4 HOURS, SUBCUTANEOUS
     Route: 058
     Dates: start: 20110331
  19. HIZENTRA [Suspect]
     Indication: IMMUNODEFICIENCY COMMON VARIABLE
     Dosage: 10 G 1X/WEEK, 50 ML INFUSED IN MULTIPLE SITES OVER 3-4 HOURS, SUBCUTANEOUS
     Route: 058
     Dates: start: 20110420
  20. HIZENTRA [Suspect]
     Indication: HYPOGAMMAGLOBULINAEMIA
     Dosage: 10 G 1X/WEEK, 50 ML INFUSED IN MULTIPLE SITES OVER 3-4 HOURS, SUBCUTANEOUS
     Route: 058
     Dates: start: 20110420
  21. HIZENTRA [Suspect]
     Indication: IMMUNODEFICIENCY COMMON VARIABLE
     Dosage: 10 G 1X/WEEK, 50 ML INFUSED IN MULTIPLE SITES OVER 3-4 HOURS, SUBCUTANEOUS
     Route: 058
     Dates: start: 20110302
  22. HIZENTRA [Suspect]
     Indication: HYPOGAMMAGLOBULINAEMIA
     Dosage: 10 G 1X/WEEK, 50 ML INFUSED IN MULTIPLE SITES OVER 3-4 HOURS, SUBCUTANEOUS
     Route: 058
     Dates: start: 20110302
  23. HIZENTRA [Suspect]

REACTIONS (17)
  - SINUSITIS [None]
  - URINARY TRACT INFECTION [None]
  - TONGUE DISORDER [None]
  - DIZZINESS [None]
  - CLOSTRIDIAL INFECTION [None]
  - HEADACHE [None]
  - URINARY INCONTINENCE [None]
  - NIGHT SWEATS [None]
  - RASH MACULAR [None]
  - FUNGAL INFECTION [None]
  - CONVULSION [None]
  - FAECAL INCONTINENCE [None]
  - NAUSEA [None]
  - GAIT DISTURBANCE [None]
  - FACIAL PAIN [None]
  - EYE PAIN [None]
  - INFUSION RELATED REACTION [None]
